FAERS Safety Report 18749039 (Version 3)
Quarter: 2022Q1

REPORT INFORMATION
  Report Type: Other
  Country: US (occurrence: None)
  Receive Date: 20210116
  Receipt Date: 20220309
  Transmission Date: 20220423
  Serious: Yes (Other)
  Sender: FDA-Public Use
  Company Number: US-ROCHE-2747173

PATIENT
  Sex: Female
  Weight: 55.388 kg

DRUGS (7)
  1. ACTEMRA [Suspect]
     Active Substance: TOCILIZUMAB
     Indication: Giant cell arteritis
     Dosage: INJECT 162MG SUBCUTANEOUSLY EVERY 7 DAY(S)
     Route: 058
  2. ACTEMRA [Suspect]
     Active Substance: TOCILIZUMAB
  3. ACTEMRA [Suspect]
     Active Substance: TOCILIZUMAB
     Indication: Crohn^s disease
  4. ACTEMRA [Suspect]
     Active Substance: TOCILIZUMAB
  5. ACTEMRA [Suspect]
     Active Substance: TOCILIZUMAB
     Indication: Polymyalgia rheumatica
  6. ACTEMRA [Suspect]
     Active Substance: TOCILIZUMAB
  7. PREDNISONE [Concomitant]
     Active Substance: PREDNISONE
     Indication: Pain

REACTIONS (7)
  - Crohn^s disease [Unknown]
  - Myalgia [Unknown]
  - Headache [Unknown]
  - Giant cell arteritis [Unknown]
  - Pain [Unknown]
  - Illness [Unknown]
  - Glossodynia [Unknown]
